FAERS Safety Report 9325026 (Version 2)
Quarter: 2013Q2

REPORT INFORMATION
  Report Type: Spontaneous
  Country: IT (occurrence: None)
  Receive Date: 20130530
  Receipt Date: 20130604
  Transmission Date: 20140414
  Serious: Yes (Hospitalization)
  Sender: FDA-Public Use
  Company Number: AUR-APL-2013-04375

PATIENT
  Age: 16 Year
  Sex: Female

DRUGS (4)
  1. LORAZEPAM [Suspect]
     Indication: PRODUCT USED FOR UNKNOWN INDICATION
     Dosage: 5-6 TABLETS
     Route: 048
     Dates: start: 20130205, end: 20130205
  2. PAROXETINE (PAROXETINE) [Suspect]
     Indication: PRODUCT USED FOR UNKNOWN INDICATION
     Dosage: 5-6 TABLETS
     Route: 048
     Dates: start: 20130205, end: 20130205
  3. MOMENT (CAPSAICIN) [Suspect]
     Indication: PRODUCT USED FOR UNKNOWN INDICATION
     Dosage: 5-6 TABLETS
     Route: 048
     Dates: start: 20130205, end: 20130205
  4. VALERIAN [Suspect]
     Indication: PRODUCT USED FOR UNKNOWN INDICATION
     Route: 048
     Dates: start: 20130205, end: 20130205

REACTIONS (11)
  - Confusional state [None]
  - Mydriasis [None]
  - Slow speech [None]
  - Mydriasis [None]
  - Dysarthria [None]
  - Mood swings [None]
  - Depression [None]
  - Sopor [None]
  - Self-medication [None]
  - Drug abuse [None]
  - Intentional self-injury [None]
